FAERS Safety Report 4802510-1 (Version None)
Quarter: 2005Q4

REPORT INFORMATION
  Report Type: 
  Country: None (occurrence: None)
  Receive Date: 20051018
  Receipt Date: 20050505
  Transmission Date: 20060501
  Serious: Yes (Hospitalization)
  Sender: FDA-Public Use
  Company Number: US-MERCK-0505USA00795

PATIENT
  Age: 63 Year
  Sex: Female
  Weight: 72 kg

DRUGS (5)
  1. VIOXX [Suspect]
     Indication: ARTHRITIS
     Route: 048
     Dates: start: 20000101, end: 20030101
  2. PROZAC [Concomitant]
     Route: 065
     Dates: start: 19810101, end: 20020101
  3. ASPIRIN [Concomitant]
     Route: 065
  4. ALLEGRA [Concomitant]
     Route: 065
  5. ESTRADIOL [Concomitant]
     Route: 065
     Dates: start: 19800101, end: 20020101

REACTIONS (15)
  - ACUTE MYOCARDIAL INFARCTION [None]
  - ATRIAL FIBRILLATION [None]
  - BLOOD TRIGLYCERIDES INCREASED [None]
  - BRADYCARDIA [None]
  - CORONARY ARTERY DISEASE [None]
  - CORONARY ARTERY STENOSIS [None]
  - DEPRESSION [None]
  - DYSPNOEA [None]
  - FOOT OPERATION [None]
  - HAEMATOCRIT DECREASED [None]
  - HYPERCHOLESTEROLAEMIA [None]
  - HYPOTENSION [None]
  - PNEUMONIA [None]
  - VENTRICULAR FIBRILLATION [None]
  - VENTRICULAR TACHYCARDIA [None]
